FAERS Safety Report 14733865 (Version 1)
Quarter: 2018Q2

REPORT INFORMATION
  Report Type: Spontaneous
  Country: US (occurrence: US)
  Receive Date: 20180403
  Receipt Date: 20180403
  Transmission Date: 20180711
  Serious: Yes (Hospitalization)
  Sender: FDA-Public Use
  Company Number: None

PATIENT
  Sex: Female

DRUGS (7)
  1. TALTZ [Suspect]
     Active Substance: IXEKIZUMAB
     Indication: PSORIASIS
     Dosage: 80MG Q4WKS SUB-Q?AT WK 4,6,8 AND 10 EERY 2 WKS
     Route: 058
     Dates: start: 20161011
  2. PREDNISONE. [Concomitant]
     Active Substance: PREDNISONE
  3. CYANOCOBALAM [Concomitant]
  4. HYDROXYCHLOR [Concomitant]
     Active Substance: HYDROXYCHLOROQUINE
  5. SMZ/TMP DS [Concomitant]
     Active Substance: SULFAMETHOXAZOLE\TRIMETHOPRIM
  6. GOLYTELY [Concomitant]
     Active Substance: POLYETHYLENE GLYCOL 3350\POTASSIUM CHLORIDE\SODIUM BICARBONATE\SODIUM CHLORIDE\SODIUM SULFATE ANHYDROUS
  7. GAVILTE-G [Concomitant]

REACTIONS (3)
  - Renal disorder [None]
  - Malaise [None]
  - Drug dose omission [None]
